FAERS Safety Report 20763711 (Version 2)
Quarter: 2022Q2

REPORT INFORMATION
  Report Type: Spontaneous
  Country: US (occurrence: US)
  Receive Date: 20220428
  Receipt Date: 20220609
  Transmission Date: 20220721
  Serious: Yes (Other)
  Sender: FDA-Public Use
  Company Number: US-PFIZER INC-202200395695

PATIENT
  Age: 78 Year
  Sex: Female
  Weight: 81.19 kg

DRUGS (3)
  1. IBRANCE [Suspect]
     Active Substance: PALBOCICLIB
     Indication: Breast cancer metastatic
     Dosage: 125 MG, CYCLIC (FOR 21 DAYS THEN 7 DAYS OFF. TAKES IT AT 7PM EVERY EVENING)
     Route: 048
     Dates: start: 2021
  2. IBRANCE [Suspect]
     Active Substance: PALBOCICLIB
     Dosage: 125 MG
     Dates: start: 20210914
  3. LETROZOLE [Concomitant]
     Active Substance: LETROZOLE
     Indication: Breast cancer metastatic
     Dosage: 2.5 MG, 1X/DAY
     Route: 048
     Dates: start: 2021

REACTIONS (9)
  - Intestinal resection [Unknown]
  - Headache [Unknown]
  - Rhinorrhoea [Not Recovered/Not Resolved]
  - Dry mouth [Unknown]
  - Hernia [Unknown]
  - Muscle spasms [Unknown]
  - Diarrhoea [Unknown]
  - Lip dry [Unknown]
  - Chapped lips [Unknown]

NARRATIVE: CASE EVENT DATE: 20210101
